FAERS Safety Report 8805407 (Version 2)
Quarter: 2015Q2

REPORT INFORMATION
  Report Type: Report from Study
  Country: US (occurrence: US)
  Receive Date: 20120924
  Receipt Date: 20150617
  Transmission Date: 20150821
  Serious: Yes (Death)
  Sender: FDA-Public Use
  Company Number: US-ROCHE-1122576

PATIENT
  Sex: Male
  Weight: 66 kg

DRUGS (5)
  1. AVASTIN [Suspect]
     Active Substance: BEVACIZUMAB
     Indication: MALIGNANT URINARY TRACT NEOPLASM
     Dosage: IN 100 CC NS?THERAPY RECEIVED DATES: 03/MAR/2005, 17/MAR/2005,
     Route: 042
     Dates: start: 20050217
  2. SOLU-CORTEF [Concomitant]
     Active Substance: HYDROCORTISONE SODIUM SUCCINATE
     Route: 042
  3. 5-FLUOROURACIL [Concomitant]
     Active Substance: FLUOROURACIL
     Route: 042
  4. HEPARIN [Concomitant]
     Active Substance: HEPARIN SODIUM
     Route: 042
  5. ZOMETA [Concomitant]
     Active Substance: ZOLEDRONIC ACID
     Route: 042

REACTIONS (2)
  - Off label use [Unknown]
  - Death [Fatal]
